FAERS Safety Report 6301892-1 (Version None)
Quarter: 2009Q3

REPORT INFORMATION
  Report Type: 
  Country: None (occurrence: None)
  Receive Date: 20090807
  Receipt Date: 20090727
  Transmission Date: 20100115
  Serious: Yes (Hospitalization)
  Sender: FDA-Public Use
  Company Number: US-ALEXION-A200900585

PATIENT
  Sex: Female

DRUGS (6)
  1. SOLIRIS [Suspect]
     Indication: PAROXYSMAL NOCTURNAL HAEMOGLOBINURIA
     Dosage: 600 MG, QW
     Route: 042
     Dates: start: 20080710, end: 20080801
  2. SOLIRIS [Suspect]
     Dosage: 900 MG, Q2W
     Route: 042
     Dates: start: 20080807, end: 20090701
  3. SOLIRIS [Suspect]
     Dosage: 900 MG, UNK
     Dates: start: 20090727
  4. ARIXTRA [Concomitant]
     Indication: THROMBOSIS PROPHYLAXIS
     Dosage: UNK
     Route: 048
     Dates: end: 20090701
  5. FIORICET [Concomitant]
     Indication: HEADACHE
     Dosage: UNK
     Route: 048
  6. PRENATAL VITAMINS                  /01549301/ [Concomitant]
     Dosage: UNK
     Route: 048

REACTIONS (1)
  - INTESTINAL ISCHAEMIA [None]
